FAERS Safety Report 9536904 (Version 4)
Quarter: 2014Q1

REPORT INFORMATION
  Report Type: Spontaneous
  Country: JP (occurrence: JP)
  Receive Date: 20130919
  Receipt Date: 20140115
  Transmission Date: 20141002
  Serious: Yes (Other)
  Sender: FDA-Public Use
  Company Number: JP-ASTRAZENECA-2013SE37513

PATIENT
  Age: 27507 Day
  Sex: Female
  Weight: 38.5 kg

DRUGS (14)
  1. ANAPEINE [Suspect]
     Indication: POSTOPERATIVE ANALGESIA
     Dosage: 30 MG, 90 MINUTES AND 40 MINUTES BEFORE COMPLETION OF SURGERY
     Route: 008
     Dates: start: 20130522, end: 20130523
  2. ANAPEINE [Suspect]
     Indication: EPIDURAL ANAESTHESIA
     Dosage: 30 MG, 90 MINUTES AND 40 MINUTES BEFORE COMPLETION OF SURGERY
     Route: 008
     Dates: start: 20130522, end: 20130523
  3. ANAPEINE [Suspect]
     Indication: POSTOPERATIVE ANALGESIA
     Route: 008
     Dates: start: 20130522, end: 20130522
  4. ANAPEINE [Suspect]
     Indication: EPIDURAL ANAESTHESIA
     Route: 008
     Dates: start: 20130522, end: 20130522
  5. ANAPEINE [Suspect]
     Indication: POSTOPERATIVE ANALGESIA
     Dosage: 8 MG/HOUR, STARTED TO BE ADMINISTERED DURING SURGERY
     Route: 008
     Dates: start: 20130522, end: 20130522
  6. ANAPEINE [Suspect]
     Indication: EPIDURAL ANAESTHESIA
     Dosage: 8 MG/HOUR, STARTED TO BE ADMINISTERED DURING SURGERY
     Route: 008
     Dates: start: 20130522, end: 20130522
  7. LANTUS [Concomitant]
     Indication: DIABETES MELLITUS
     Route: 058
     Dates: start: 201304
  8. NIFEDIPINE CR [Concomitant]
     Indication: HYPERTENSION
     Route: 048
     Dates: start: 1988
  9. DIPRIVAN [Concomitant]
     Indication: INDUCTION OF ANAESTHESIA
     Route: 042
     Dates: start: 20130522, end: 20130522
  10. ESLAX [Concomitant]
     Indication: INDUCTION AND MAINTENANCE OF ANAESTHESIA
     Route: 042
     Dates: start: 20130522, end: 20130522
  11. DESFLURANE [Concomitant]
     Indication: INDUCTION AND MAINTENANCE OF ANAESTHESIA
     Route: 055
     Dates: start: 20130522, end: 20130522
  12. ULTIVA [Concomitant]
     Indication: INDUCTION AND MAINTENANCE OF ANAESTHESIA
     Route: 042
     Dates: start: 20130522, end: 20130522
  13. FENTANYL [Concomitant]
     Indication: MAINTENANCE OF ANAESTHESIA
     Route: 042
     Dates: start: 20130522, end: 20130522
  14. ROPION [Concomitant]
     Indication: ANALGESIC THERAPY
     Route: 042
     Dates: start: 20130522, end: 20130522

REACTIONS (7)
  - Toxicity to various agents [Recovered/Resolved]
  - Coma [Recovered/Resolved]
  - Face oedema [Unknown]
  - Muscle tightness [Unknown]
  - Muscular weakness [Recovered/Resolved]
  - Dysphonia [Recovered/Resolved]
  - Wrong technique in drug usage process [Unknown]
